FAERS Safety Report 8347996-3 (Version None)
Quarter: 2012Q2

REPORT INFORMATION
  Report Type: 
  Country: None (occurrence: None)
  Receive Date: 20120507
  Receipt Date: 20120430
  Transmission Date: 20120825
  Serious: Yes (Hospitalization)
  Sender: FDA-Public Use
  Company Number: 2012050009

PATIENT
  Age: 88 Year
  Sex: Female

DRUGS (4)
  1. TORSEMIDE [Suspect]
     Indication: HYPERTENSION
  2. METAMIZOLE (METAMIZOLE) [Concomitant]
  3. TRAMADOL HCL [Concomitant]
  4. TRIAMTERENE (TRIAMTERENE) [Concomitant]

REACTIONS (3)
  - CONJUNCTIVITIS [None]
  - PHOTOSENSITIVITY REACTION [None]
  - KERATITIS [None]
